FAERS Safety Report 10576739 (Version 1)
Quarter: 2014Q4

REPORT INFORMATION
  Report Type: Spontaneous
  Country: FR (occurrence: FR)
  Receive Date: 20141111
  Receipt Date: 20141111
  Transmission Date: 20150529
  Serious: Yes (Life-Threatening)
  Sender: FDA-Public Use
  Company Number: FR-BRISTOL-MYERS SQUIBB COMPANY-21558549

PATIENT
  Age: 65 Year
  Sex: Male

DRUGS (4)
  1. KOMBOGLYZE [Suspect]
     Active Substance: METFORMIN HYDROCHLORIDE\SAXAGLIPTIN
     Indication: TYPE 2 DIABETES MELLITUS
     Dosage: 1DF: 2.5/1000MG
     Route: 048
     Dates: start: 20140729, end: 20140922
  2. ONGLYZA [Suspect]
     Active Substance: SAXAGLIPTIN HYDROCHLORIDE
     Indication: TYPE 2 DIABETES MELLITUS
     Route: 048
     Dates: start: 201010, end: 20140729
  3. METFORMINE [Concomitant]
     Active Substance: METFORMIN HYDROCHLORIDE
  4. SIMVASTATINE [Concomitant]
     Active Substance: SIMVASTATIN

REACTIONS (1)
  - Pancreatic carcinoma [Not Recovered/Not Resolved]

NARRATIVE: CASE EVENT DATE: 201409
